FAERS Safety Report 5926215-9 (Version None)
Quarter: 2008Q4

REPORT INFORMATION
  Report Type: 
  Country: None (occurrence: None)
  Receive Date: 20081017
  Receipt Date: 20081006
  Transmission Date: 20090506
  Serious: Yes (Hospitalization)
  Sender: FDA-Public Use
  Company Number: 1-16712540

PATIENT
  Age: 12 Year
  Sex: Male
  Weight: 43.5453 kg

DRUGS (3)
  1. METHYLPREDNISOLONE [Suspect]
     Indication: PNEUMONIA
     Dosage: 24 MG, ONCE, ORAL
     Route: 048
     Dates: start: 20080922, end: 20080922
  2. Z-PAK (AZITHROMYCIN) [Concomitant]
  3. CEFUROXIME [Concomitant]

REACTIONS (9)
  - ABASIA [None]
  - ABDOMINAL PAIN UPPER [None]
  - ARTHRALGIA [None]
  - BACK PAIN [None]
  - GAIT DISTURBANCE [None]
  - HEADACHE [None]
  - MUSCULAR WEAKNESS [None]
  - VOMITING [None]
  - WALKING AID USER [None]
